FAERS Safety Report 22078162 (Version 1)
Quarter: 2023Q1

REPORT INFORMATION
  Report Type: Spontaneous
  Country: US (occurrence: None)
  Receive Date: 20230308
  Receipt Date: 20230308
  Transmission Date: 20230418
  Serious: Yes (Disabling)
  Sender: FDA-Public Use
  Company Number: None

PATIENT
  Age: 59 Year
  Sex: Male
  Weight: 99 kg

DRUGS (7)
  1. LISINOPRIL [Suspect]
     Active Substance: LISINOPRIL
     Indication: Hypertension
     Dosage: OTHER QUANTITY : 2 TABLET(S);?
     Route: 048
     Dates: start: 20220615, end: 20221214
  2. AMLODIPINE BESYLATE [Suspect]
     Active Substance: AMLODIPINE BESYLATE
     Indication: Hypertension
     Dosage: OTHER QUANTITY : 1 TABLET(S);?FREQUENCY : EVERY DAY BEFORE NOON;?
     Route: 048
     Dates: end: 20230215
  3. Allopurinol -100 mg [Concomitant]
  4. Bystolic -5 mg [Concomitant]
  5. VITAMINS [Concomitant]
     Active Substance: VITAMINS
  6. HERBALS\TURMERIC [Concomitant]
     Active Substance: HERBALS\TURMERIC
  7. VITAMIN D [Concomitant]
     Active Substance: VITAMIN D NOS

REACTIONS (14)
  - Swelling face [None]
  - Dyspnoea [None]
  - Hypertension [None]
  - Fatigue [None]
  - Insomnia [None]
  - Pharyngeal swelling [None]
  - Feeding disorder [None]
  - Tinnitus [None]
  - Erectile dysfunction [None]
  - Disturbance in attention [None]
  - Oedema [None]
  - Tremor [None]
  - Feeling cold [None]
  - Impaired work ability [None]

NARRATIVE: CASE EVENT DATE: 20220915
